FAERS Safety Report 9068728 (Version 1)
Quarter: 2013Q1

REPORT INFORMATION
  Report Type: Spontaneous
  Country: US (occurrence: None)
  Receive Date: 20130212
  Receipt Date: 20130212
  Transmission Date: 20140127
  Serious: Yes (Other)
  Sender: FDA-Public Use
  Company Number: None

PATIENT
  Sex: Female
  Weight: 86.18 kg

DRUGS (1)
  1. PRAVASTATIN [Suspect]
     Indication: BLOOD CHOLESTEROL
     Dosage: ONE DAILY ORAL
     Route: 048
     Dates: start: 2006, end: 2012

REACTIONS (5)
  - Myalgia [None]
  - Muscle spasms [None]
  - Quality of life decreased [None]
  - Paralysis [None]
  - Movement disorder [None]
